FAERS Safety Report 23321544 (Version 1)
Quarter: 2023Q4

REPORT INFORMATION
  Report Type: Report from Study
  Country: GB (occurrence: GB)
  Receive Date: 20231220
  Receipt Date: 20231220
  Transmission Date: 20240110
  Serious: Yes (Other)
  Sender: FDA-Public Use
  Company Number: GB-SANDOZ-SDZ2023GB064836

PATIENT
  Sex: Male

DRUGS (2)
  1. HYRIMOZ [Suspect]
     Active Substance: ADALIMUMAB-ADAZ
     Indication: Ankylosing spondylitis
     Dosage: 40 MG, EOW
     Route: 058
  2. HYRIMOZ [Suspect]
     Active Substance: ADALIMUMAB-ADAZ
     Dosage: 40 MG, EOW
     Route: 058

REACTIONS (10)
  - Suicidal ideation [Not Recovered/Not Resolved]
  - Colitis [Not Recovered/Not Resolved]
  - Anxiety [Unknown]
  - Full blood count abnormal [Unknown]
  - Emotional distress [Not Recovered/Not Resolved]
  - Depression [Not Recovered/Not Resolved]
  - Eye haemorrhage [Not Recovered/Not Resolved]
  - Pain [Not Recovered/Not Resolved]
  - Gait inability [Not Recovered/Not Resolved]
  - Product dose omission issue [Unknown]
